FAERS Safety Report 12729218 (Version 1)
Quarter: 2016Q3

REPORT INFORMATION
  Report Type: Spontaneous
  Country: GB (occurrence: GB)
  Receive Date: 20160909
  Receipt Date: 20160909
  Transmission Date: 20161109
  Serious: Yes (Other)
  Sender: FDA-Public Use
  Company Number: GB-PFIZER INC-2016420220

PATIENT
  Sex: Male

DRUGS (3)
  1. AMLODIPINE BESILATE [Suspect]
     Active Substance: AMLODIPINE BESYLATE
     Dosage: 5 MG, UNK
     Dates: start: 201601, end: 201603
  2. AMLODIPINE BESILATE [Suspect]
     Active Substance: AMLODIPINE BESYLATE
     Dosage: 10 MG, UNK
  3. AMLODIPINE BESILATE [Suspect]
     Active Substance: AMLODIPINE BESYLATE
     Dosage: 5 MG, UNK
     Dates: end: 201603

REACTIONS (22)
  - Erythema [Not Recovered/Not Resolved]
  - Gingival pain [Unknown]
  - Oedema peripheral [Not Recovered/Not Resolved]
  - Paraesthesia [Not Recovered/Not Resolved]
  - Sinus pain [Not Recovered/Not Resolved]
  - Pain [Not Recovered/Not Resolved]
  - Scab [Not Recovered/Not Resolved]
  - Nasopharyngitis [Not Recovered/Not Resolved]
  - Secretion discharge [Not Recovered/Not Resolved]
  - Nasal congestion [Not Recovered/Not Resolved]
  - Rhinorrhoea [Not Recovered/Not Resolved]
  - Skin ulcer [Recovering/Resolving]
  - Sputum discoloured [Unknown]
  - Back pain [Unknown]
  - Somnolence [Unknown]
  - Pruritus [Unknown]
  - Gingival bleeding [Unknown]
  - Erectile dysfunction [Unknown]
  - Constipation [Unknown]
  - Oropharyngeal pain [Not Recovered/Not Resolved]
  - Urticaria [Unknown]
  - Productive cough [Not Recovered/Not Resolved]

NARRATIVE: CASE EVENT DATE: 201601
